FAERS Safety Report 12308181 (Version 1)
Quarter: 2016Q2

REPORT INFORMATION
  Report Type: Other
  Country: US (occurrence: US)
  Receive Date: 20160426
  Receipt Date: 20160426
  Transmission Date: 20160815
  Serious: Yes (Hospitalization)
  Sender: FDA-Public Use
  Company Number: US-WALGREENS-1051046

PATIENT
  Age: 76 Year
  Sex: Female
  Weight: 63.64 kg

DRUGS (2)
  1. ACETAMINOPHEN 500MG AND DIPHENHYDRAMINE 50MG CAPLET [Suspect]
     Active Substance: ACETAMINOPHEN\DIPHENHYDRAMINE HYDROCHLORIDE
     Indication: PAIN
     Route: 048
  2. DIPHENDYDRAMINE HYDROCHLORIDE [Suspect]
     Active Substance: DIPHENHYDRAMINE HYDROCHLORIDE
     Route: 048

REACTIONS (2)
  - Dyspnoea [Recovered/Resolved]
  - Erythema [None]
